FAERS Safety Report 9613733 (Version 3)
Quarter: 2014Q1

REPORT INFORMATION
  Report Type: Spontaneous
  Country: US (occurrence: US)
  Receive Date: 20131010
  Receipt Date: 20140328
  Transmission Date: 20141002
  Serious: Yes (Hospitalization, Other)
  Sender: FDA-Public Use
  Company Number: US-B.I. PHARMACEUTICALS,INC./RIDGEFIELD-2013-BI-31351BP

PATIENT
  Age: 74 Year
  Sex: Male
  Weight: 107.5 kg

DRUGS (11)
  1. PRADAXA [Suspect]
     Indication: ATRIAL FIBRILLATION
     Dosage: 300 MG
     Route: 048
     Dates: start: 20111003, end: 20130108
  2. FLECAINIDE ACETATE [Concomitant]
     Dosage: 200 MG
     Route: 048
  3. ATORVASTATIN [Concomitant]
     Route: 065
  4. SPIRONOLACTONE [Concomitant]
     Dosage: 25 MG
     Route: 048
  5. AMLODIPINE BESYLATE [Concomitant]
     Dosage: 5 MG
     Route: 048
  6. PATADAY EYE DROPS [Concomitant]
     Route: 065
  7. BENAZEPRIL [Concomitant]
     Dosage: 20 MG
     Route: 048
  8. FINASTERIDE [Concomitant]
     Dosage: 5 MG
     Route: 048
  9. ALLOPURINOL [Concomitant]
     Dosage: 300 MG
     Route: 048
  10. METFORMIN [Concomitant]
     Dosage: 1000 MG
     Route: 048
  11. OMEPRAZOLE [Concomitant]
     Dosage: 80 MG
     Route: 048

REACTIONS (5)
  - Upper gastrointestinal haemorrhage [Unknown]
  - Iron deficiency anaemia [Recovered/Resolved]
  - Renal failure acute [Recovered/Resolved]
  - Contusion [Unknown]
  - Gravitational oedema [Unknown]
